FAERS Safety Report 5289362-3 (Version None)
Quarter: 2007Q2

REPORT INFORMATION
  Report Type: 
  Country: None (occurrence: None)
  Receive Date: 20070406
  Receipt Date: 20070323
  Transmission Date: 20071010
  Serious: Yes (Hospitalization)
  Sender: FDA-Public Use
  Company Number: PHEH2007US03457

PATIENT
  Age: 65 Year
  Sex: Female

DRUGS (16)
  1. AREDIA [Suspect]
     Indication: MULTIPLE MYELOMA
     Dosage: 90MG Q4WKS
     Route: 042
     Dates: start: 20060301
  2. THALIDOMID [Suspect]
     Indication: MULTIPLE MYELOMA
     Dosage: 200 MG, QD
     Dates: start: 20060307, end: 20060401
  3. THALIDOMID [Suspect]
     Dosage: 100 MG, QD
     Dates: start: 20060401
  4. LEVOXYL [Concomitant]
  5. ASPIRIN [Concomitant]
  6. LOVENOX [Concomitant]
  7. AVAPRO [Concomitant]
     Indication: HYPERTENSION
     Dosage: 150 MG, BID
  8. ZANTAC [Concomitant]
     Indication: GASTROOESOPHAGEAL REFLUX DISEASE
     Dosage: 150 MG, BID
  9. LASIX [Concomitant]
     Dosage: 40 MG, BID
  10. LASIX [Concomitant]
     Dosage: UNK, UNK
     Route: 042
     Dates: start: 20060427
  11. POTASSIUM ACETATE [Concomitant]
     Dosage: UNK, BID
  12. QUININE [Concomitant]
     Dosage: 260 MG, QHS
  13. DURAGESIC-100 [Concomitant]
  14. MSIR [Concomitant]
     Dosage: Q4-6HRS
  15. CADUET [Concomitant]
  16. METFORMIN [Concomitant]

REACTIONS (22)
  - ASTHENIA [None]
  - BACK PAIN [None]
  - BLOOD SODIUM DECREASED [None]
  - CARDIAC FAILURE CONGESTIVE [None]
  - COMPRESSION FRACTURE [None]
  - DEEP VEIN THROMBOSIS [None]
  - DEPRESSED LEVEL OF CONSCIOUSNESS [None]
  - DRUG INTERACTION [None]
  - DYSPNOEA [None]
  - EXCORIATION [None]
  - FALL [None]
  - FEELING COLD [None]
  - INTUBATION [None]
  - NAUSEA [None]
  - OXYGEN SATURATION DECREASED [None]
  - PAIN IN EXTREMITY [None]
  - PITTING OEDEMA [None]
  - PNEUMONIA [None]
  - PRODUCTIVE COUGH [None]
  - PULMONARY OEDEMA [None]
  - RESPIRATORY FAILURE [None]
  - WHEELCHAIR USER [None]
